FAERS Safety Report 6717276-8 (Version None)
Quarter: 2010Q2

REPORT INFORMATION
  Report Type: 
  Country: None (occurrence: None)
  Receive Date: 20100510
  Receipt Date: 20100430
  Transmission Date: 20101027
  Serious: Yes (Other)
  Sender: FDA-Public Use
  Company Number: US-SANOFI-AVENTIS-2010SA009162

PATIENT
  Age: 81 Year
  Sex: Female
  Weight: 64.86 kg

DRUGS (9)
  1. MULTAQ [Suspect]
     Indication: ATRIAL FIBRILLATION
     Route: 048
     Dates: start: 20100126
  2. ATENOLOL [Suspect]
     Indication: ATRIAL FIBRILLATION
     Route: 048
     Dates: start: 20050101, end: 20100205
  3. WARFARIN SODIUM [Concomitant]
     Indication: ATRIAL FIBRILLATION
     Dosage: VARIES FROM 2.5 TO 5.0 MG
     Dates: start: 20060101
  4. DILTIAZEM HCL [Concomitant]
     Indication: ATRIAL FIBRILLATION
     Route: 048
     Dates: start: 20080101
  5. XALATAN [Concomitant]
     Indication: GLAUCOMA
     Dates: start: 20080101
  6. TYLENOL-500 [Concomitant]
     Indication: OSTEOARTHRITIS
     Route: 048
     Dates: start: 20040101
  7. CENTRUM SILVER [Concomitant]
  8. GLUCOSAMINE SULFATE [Concomitant]
  9. CALCIUM/VITAMIN D [Concomitant]

REACTIONS (11)
  - ASTHENIA [None]
  - ATRIAL FIBRILLATION [None]
  - CHEST DISCOMFORT [None]
  - DRUG INTERACTION [None]
  - DYSPNOEA [None]
  - FATIGUE [None]
  - GAIT DISTURBANCE [None]
  - HEART RATE INCREASED [None]
  - NON-CARDIAC CHEST PAIN [None]
  - WEIGHT FLUCTUATION [None]
  - WHEEZING [None]
